FAERS Safety Report 9970177 (Version 4)
Quarter: 2014Q3

REPORT INFORMATION
  Report Type: Spontaneous
  Country: FR (occurrence: FR)
  Receive Date: 20140306
  Receipt Date: 20140731
  Transmission Date: 20150326
  Serious: Yes (Other)
  Sender: FDA-Public Use
  Company Number: FR-ASTELLAS-2014EU000360

PATIENT
  Age: 14 Year
  Sex: Female

DRUGS (3)
  1. COLD                               /01040401/ [Suspect]
     Active Substance: UNSPECIFIED INGREDIENT
     Indication: DERMATITIS ATOPIC
     Route: 061
     Dates: start: 201305, end: 201401
  2. PROTOPIC [Suspect]
     Active Substance: TACROLIMUS
     Indication: DERMATITIS ATOPIC
     Route: 061
     Dates: start: 201305
  3. PROTOPIC [Suspect]
     Active Substance: TACROLIMUS
     Route: 061
     Dates: start: 201312

REACTIONS (3)
  - Keratitis [Recovered/Resolved]
  - Conjunctivitis allergic [Recovered/Resolved]
  - Molluscum contagiosum [Recovered/Resolved]

NARRATIVE: CASE EVENT DATE: 201304
